FAERS Safety Report 14253903 (Version 1)
Quarter: 2017Q4

REPORT INFORMATION
  Report Type: Spontaneous
  Country: US (occurrence: US)
  Receive Date: 20171206
  Receipt Date: 20171206
  Transmission Date: 20180321
  Serious: Yes (Other)
  Sender: FDA-Public Use
  Company Number: US-AMGEN-USASP2017178885

PATIENT
  Age: 77 Year
  Sex: Male
  Weight: 79.37 kg

DRUGS (1)
  1. ENBREL [Suspect]
     Active Substance: ETANERCEPT
     Indication: RHEUMATOID ARTHRITIS
     Dosage: 50 MG, QWK
     Route: 058

REACTIONS (3)
  - Blood glucose increased [Unknown]
  - Hip arthroplasty [Unknown]
  - Urticaria [Unknown]

NARRATIVE: CASE EVENT DATE: 201612
